FAERS Safety Report 5199203-0 (Version None)
Quarter: 2006Q4

REPORT INFORMATION
  Report Type: 
  Country: None (occurrence: None)
  Receive Date: 20061016
  Receipt Date: 20060725
  Transmission Date: 20070319
  Serious: No
  Sender: FDA-Public Use
  Company Number: 2006SP002054

PATIENT
  Age: 71 Year
  Sex: Male
  Weight: 94.3482 kg

DRUGS (10)
  1. LUNESTA [Suspect]
     Indication: INSOMNIA
     Dosage: 2 MG; ORAL
     Route: 048
     Dates: start: 20060401
  2. HYDROCORTISONE [Concomitant]
  3. ARICEPT [Concomitant]
  4. AGGRENOX [Concomitant]
  5. SYNTHROID [Concomitant]
  6. LISINOPRIL [Concomitant]
  7. ZETIA [Concomitant]
  8. TRICOR [Concomitant]
  9. DETROL [Concomitant]
  10. ZANTAC [Concomitant]

REACTIONS (5)
  - DEMENTIA [None]
  - DIZZINESS [None]
  - DRUG INEFFECTIVE [None]
  - HALLUCINATION [None]
  - MIDDLE INSOMNIA [None]
